FAERS Safety Report 11264367 (Version 1)
Quarter: 2015Q3

REPORT INFORMATION
  Report Type: Spontaneous
  Country: US (occurrence: None)
  Receive Date: 20150710
  Receipt Date: 20150710
  Transmission Date: 20151125
  Serious: Yes (Other)
  Sender: FDA-Public Use
  Company Number: None

PATIENT
  Age: 57 Year
  Sex: Male

DRUGS (2)
  1. RIBAVIRIN 200MG [Suspect]
     Active Substance: RIBAVIRIN
     Indication: HEPATITIS C
     Dosage: RIBAVIRIN  BID  ORAL
     Route: 048
     Dates: start: 20150601
  2. VIEKIRA PAK [Suspect]
     Active Substance: DASABUVIR\OMBITASVIR\PARITAPREVIR\RITONAVIR
     Indication: HEPATITIS C
     Dosage: VIEKIRA PACK BID ORAL
     Route: 048
     Dates: start: 20150601

REACTIONS (3)
  - Tremor [None]
  - Vomiting [None]
  - Disturbance in attention [None]

NARRATIVE: CASE EVENT DATE: 20150707
